FAERS Safety Report 25018391 (Version 1)
Quarter: 2025Q1

REPORT INFORMATION
  Report Type: Spontaneous
  Country: US (occurrence: US)
  Receive Date: 20250227
  Receipt Date: 20250227
  Transmission Date: 20250409
  Serious: No
  Sender: AVADEL CNS PHARMACEUTICALS, LLC
  Company Number: US-AVADEL CNS PHARMACEUTICALS, LLC-2025AVA00260

PATIENT
  Age: 20 Year
  Sex: Female

DRUGS (3)
  1. LUMRYZ [Suspect]
     Active Substance: SODIUM OXYBATE
     Dates: start: 20250114, end: 202501
  2. LUMRYZ [Suspect]
     Active Substance: SODIUM OXYBATE
     Dates: start: 202501
  3. ALCOHOL [Concomitant]
     Active Substance: ALCOHOL

REACTIONS (8)
  - Poor quality sleep [Not Recovered/Not Resolved]
  - Restlessness [Unknown]
  - Middle insomnia [Unknown]
  - Performance status decreased [Unknown]
  - Somnolence [Unknown]
  - Panic reaction [Unknown]
  - Irritability [Unknown]
  - Intentional dose omission [Recovered/Resolved]

NARRATIVE: CASE EVENT DATE: 20250101
